FAERS Safety Report 9387776 (Version 1)
Quarter: 2013Q3

REPORT INFORMATION
  Report Type: Spontaneous
  Country: US (occurrence: US)
  Receive Date: 20130708
  Receipt Date: 20130708
  Transmission Date: 20140515
  Serious: Yes (Hospitalization, Other)
  Sender: FDA-Public Use
  Company Number: US-BAYER-2013-080551

PATIENT
  Age: 77 Year
  Sex: Female
  Weight: 52.15 kg

DRUGS (3)
  1. BAYER ASPIRIN REGIMEN ADULT LOW STRENGTH [Suspect]
     Indication: ISCHAEMIC HEART DISEASE PROPHYLAXIS
     Dosage: UNK
     Route: 048
     Dates: end: 201206
  2. ONE A DAY ESSENTIAL [Suspect]
  3. CENTRUM SILVER [Concomitant]

REACTIONS (7)
  - Gastric cancer [None]
  - Gastric ulcer [None]
  - Aphagia [None]
  - Faeces discoloured [Recovered/Resolved]
  - Haematochezia [None]
  - Weight decreased [None]
  - Gastric disorder [None]
